FAERS Safety Report 21707340 (Version 1)
Quarter: 2022Q4

REPORT INFORMATION
  Report Type: Report from Study
  Country: US (occurrence: US)
  Receive Date: 20221209
  Receipt Date: 20221209
  Transmission Date: 20230112
  Serious: Yes (Other)
  Sender: FDA-Public Use
  Company Number: US-002147023-NVSC2022US282634

PATIENT
  Age: 70 Year
  Sex: Male

DRUGS (1)
  1. LEQVIO [Suspect]
     Active Substance: INCLISIRAN SODIUM
     Indication: Product used for unknown indication
     Dosage: UNK
     Route: 058
     Dates: start: 20221001

REACTIONS (10)
  - Cerebrovascular accident [Unknown]
  - Vertigo [Unknown]
  - Gait disturbance [Unknown]
  - Balance disorder [Unknown]
  - Dysstasia [Unknown]
  - Chronic obstructive pulmonary disease [Unknown]
  - Oxygen consumption decreased [Unknown]
  - Visual impairment [Unknown]
  - Arthralgia [Unknown]
  - General physical health deterioration [Unknown]

NARRATIVE: CASE EVENT DATE: 20221001
